FAERS Safety Report 20631995 (Version 3)
Quarter: 2022Q3

REPORT INFORMATION
  Report Type: Report from Study
  Country: US (occurrence: None)
  Receive Date: 20220324
  Receipt Date: 20220705
  Transmission Date: 20221027
  Serious: Yes (Hospitalization)
  Sender: FDA-Public Use
  Company Number: US-ROCHE-3048209

PATIENT
  Age: 65 Year
  Sex: Male

DRUGS (17)
  1. ATEZOLIZUMAB [Suspect]
     Active Substance: ATEZOLIZUMAB
     Indication: Oesophageal cancer metastatic
     Route: 041
     Dates: start: 20210806
  2. FLUOROURACIL [Suspect]
     Active Substance: FLUOROURACIL
     Indication: Oesophageal cancer metastatic
     Dosage: DATE OF MOST RECENT DOSE OF STUDY DRUG PRIOR TO AE: 17/FEB/2022
     Route: 042
     Dates: start: 20210806
  3. CISPLATIN [Suspect]
     Active Substance: CISPLATIN
     Indication: Oesophageal cancer metastatic
     Dosage: DATE OF MOST RECENT DOSE OF STUDY DRUG PRIOR TO AE: 18/NOV/2021 (1200 MG)
     Route: 042
     Dates: start: 20210806
  4. NORVASC [Concomitant]
     Active Substance: AMLODIPINE BESYLATE
     Indication: Hypertension
     Dosage: GIVEN FOR PROPHYLAXIS IS NO :ONGOING : YES
  5. LYRICA [Concomitant]
     Active Substance: PREGABALIN
     Indication: Neuralgia
     Dosage: GIVEN FOR PROPHYLAXIS IS NO :ONGOING : YES
     Dates: start: 202107
  6. ALEVE [Concomitant]
     Active Substance: NAPROXEN SODIUM
     Indication: Pain
     Dosage: GIVEN FOR PROPHYLAXIS IS NO :ONGOING : YES
     Dates: start: 20210714
  7. LIDOCAINE VISCOUS [Concomitant]
     Active Substance: LIDOCAINE HYDROCHLORIDE
     Indication: Mucosal inflammation
     Dosage: ONGOING : YES
     Dates: start: 20210806
  8. OXYCODONE [Concomitant]
     Active Substance: OXYCODONE
     Indication: Pain
     Dosage: ONGOING : YES
     Dates: start: 20210806
  9. NALOXONE HCL [Concomitant]
     Active Substance: NALOXONE HYDROCHLORIDE
     Dosage: ONGOING : YES
     Dates: start: 20210808
  10. LACTULOSE [Concomitant]
     Active Substance: LACTULOSE
     Indication: Constipation
     Dosage: ONGOING : YES
     Dates: start: 20210811
  11. OLANZAPINE [Concomitant]
     Active Substance: OLANZAPINE
     Indication: Nausea
     Dosage: ONGOING : YES
     Dates: start: 20210826
  12. SENNAE [Concomitant]
     Indication: Constipation
     Dosage: ONGOING : YES
     Dates: start: 20210916
  13. COMPAZINE [Concomitant]
     Active Substance: PROCHLORPERAZINE MALEATE
     Indication: Nausea
     Dosage: ONGOING:YES
     Dates: start: 20211208
  14. METOCLOPRAMIDE [Concomitant]
     Active Substance: METOCLOPRAMIDE
     Indication: Nausea
     Dosage: ONGOING : YES
     Dates: start: 20220107
  15. PANTOPRAZOLE [Concomitant]
     Active Substance: PANTOPRAZOLE
     Indication: Haematemesis
     Dosage: ONGGOING : YES
     Route: 048
     Dates: start: 20220201
  16. ONDANSETRON [Concomitant]
     Active Substance: ONDANSETRON
     Indication: Nausea
     Dosage: ONGOING : YES
     Dates: start: 20210809
  17. FOLIC ACID [Concomitant]
     Active Substance: FOLIC ACID
     Indication: Anaemia
     Route: 048
     Dates: start: 20210202

REACTIONS (1)
  - Pneumonia [Recovered/Resolved]

NARRATIVE: CASE EVENT DATE: 20220307
